FAERS Safety Report 5018412-4 (Version None)
Quarter: 2006Q2

REPORT INFORMATION
  Report Type: 
  Country: None (occurrence: None)
  Receive Date: 20060530
  Receipt Date: 20060518
  Transmission Date: 20061013
  Serious: Yes (Other)
  Sender: FDA-Public Use
  Company Number: 225290

PATIENT
  Sex: Female

DRUGS (2)
  1. RITUXAN [Suspect]
  2. FLUDARABINE [Concomitant]

REACTIONS (1)
  - ANAPHYLACTIC SHOCK [None]
